FAERS Safety Report 4382931-4 (Version None)
Quarter: 2004Q2

REPORT INFORMATION
  Report Type: 
  Country: None (occurrence: None)
  Receive Date: 20040622
  Receipt Date: 20040615
  Transmission Date: 20050107
  Serious: Yes (Other)
  Sender: FDA-Public Use
  Company Number: GB-MERCK-0406GBR00131

PATIENT
  Age: 60 Year
  Sex: Female
  Weight: 56 kg

DRUGS (3)
  1. LATANOPROST [Concomitant]
     Route: 065
     Dates: start: 20030710
  2. RANITIDINE [Concomitant]
     Route: 065
     Dates: start: 20040505, end: 20040605
  3. ZOCOR [Suspect]
     Indication: CHEST PAIN
     Route: 048
     Dates: start: 20040521, end: 20040603

REACTIONS (1)
  - INCREASED TENDENCY TO BRUISE [None]
